FAERS Safety Report 6022922-0 (Version None)
Quarter: 2008Q4

REPORT INFORMATION
  Report Type: 
  Country: None (occurrence: None)
  Receive Date: 20081230
  Receipt Date: 20081219
  Transmission Date: 20090506
  Serious: Yes (Hospitalization, Other)
  Sender: FDA-Public Use
  Company Number: PHHY2008JP22562

PATIENT
  Sex: Female
  Weight: 2.4 kg

DRUGS (4)
  1. NEORAL [Suspect]
     Route: 064
  2. METHYLPREDNISOLONE 16MG TAB [Concomitant]
     Route: 064
  3. AZATHIOPRINE [Concomitant]
     Route: 064
  4. MIZORIBINE [Concomitant]
     Route: 064

REACTIONS (4)
  - DRUG EXPOSURE DURING PREGNANCY [None]
  - GASTROINTESTINAL SURGERY [None]
  - SMALL FOR DATES BABY [None]
  - SMALL INTESTINAL OBSTRUCTION [None]
